FAERS Safety Report 18671132 (Version 3)
Quarter: 2021Q2

REPORT INFORMATION
  Report Type: Report from Study
  Country: NO (occurrence: NO)
  Receive Date: 20201228
  Receipt Date: 20210629
  Transmission Date: 20210717
  Serious: Yes (Hospitalization, Other)
  Sender: FDA-Public Use
  Company Number: NO-TAKEDA-NO201841393

PATIENT
  Age: 4 Year
  Sex: Female
  Weight: 12 kg

DRUGS (20)
  1. TEDUGLUTIDE [Suspect]
     Active Substance: TEDUGLUTIDE
     Dosage: 0.75 MILLIGRAM, QD
     Route: 065
     Dates: start: 20190917
  2. TEDUGLUTIDE [Suspect]
     Active Substance: TEDUGLUTIDE
     Indication: SHORT-BOWEL SYNDROME
     Dosage: 0.5 MG (0.5 MG/KG), 7 DOSES PER WEEK
     Route: 065
     Dates: start: 20170208, end: 20170925
  3. TEDUGLUTIDE [Suspect]
     Active Substance: TEDUGLUTIDE
     Dosage: 0.5 MG (0.05 MG/KG), 7 DOSES PER WEEK
     Route: 065
     Dates: start: 20180106, end: 20190916
  4. URSODIOL. [Concomitant]
     Active Substance: URSODIOL
     Indication: HEPATIC FAILURE
  5. TEDUGLUTIDE [Suspect]
     Active Substance: TEDUGLUTIDE
     Dosage: 0.5 MG (0.05 MG/KG), 7 DOSES PER WEEK
     Route: 065
     Dates: start: 20180106, end: 20190916
  6. RANITIDINE. [Concomitant]
     Active Substance: RANITIDINE
     Indication: SECRETION DISCHARGE
  7. DICLOXACILLIN [Concomitant]
     Active Substance: DICLOXACILLIN
     Indication: VASCULAR DEVICE INFECTION
     Dosage: 600 MILLIGRAM, QID
     Route: 042
     Dates: start: 20180518, end: 20180525
  8. TEDUGLUTIDE [Suspect]
     Active Substance: TEDUGLUTIDE
     Indication: SHORT-BOWEL SYNDROME
     Dosage: 0.5 MG (0.5 MG/KG), 7 DOSES PER WEEK
     Route: 065
     Dates: start: 20170208, end: 20170925
  9. TEDUGLUTIDE [Suspect]
     Active Substance: TEDUGLUTIDE
     Indication: SHORT-BOWEL SYNDROME
     Dosage: 0.5 MG (0.5 MG/KG), 7 DOSES PER WEEK
     Route: 065
     Dates: start: 20170208, end: 20170925
  10. TEDUGLUTIDE [Suspect]
     Active Substance: TEDUGLUTIDE
     Dosage: 0.5 MG (0.05 MG/KG), 7 DOSES PER WEEK
     Route: 065
     Dates: start: 20180106, end: 20190916
  11. TEDUGLUTIDE [Suspect]
     Active Substance: TEDUGLUTIDE
     Dosage: 0.75 MILLIGRAM, QD
     Route: 065
     Dates: start: 20190917
  12. AMOKSICILLIN [Concomitant]
     Indication: OVERGROWTH BACTERIAL
  13. ESOMEPRAZOL [Concomitant]
     Active Substance: ESOMEPRAZOLE
     Indication: GASTRIC ULCER
     Dosage: 15 MILLIGRAM, BID
     Route: 048
     Dates: start: 20200213
  14. TEDUGLUTIDE [Suspect]
     Active Substance: TEDUGLUTIDE
     Dosage: 0.5 MG (0.05 MG/KG), 7 DOSES PER WEEK
     Route: 065
     Dates: start: 20180106, end: 20190916
  15. TEDUGLUTIDE [Suspect]
     Active Substance: TEDUGLUTIDE
     Dosage: 0.75 MILLIGRAM, QD
     Route: 065
     Dates: start: 20190917
  16. TEDUGLUTIDE [Suspect]
     Active Substance: TEDUGLUTIDE
     Dosage: 0.75 MILLIGRAM, QD
     Route: 065
     Dates: start: 20190917
  17. TEDUGLUTIDE [Suspect]
     Active Substance: TEDUGLUTIDE
     Indication: SHORT-BOWEL SYNDROME
     Dosage: 0.5 MG (0.5 MG/KG), 7 DOSES PER WEEK
     Route: 065
     Dates: start: 20170208, end: 20170925
  18. LOPERAMID [Concomitant]
     Active Substance: LOPERAMIDE
     Indication: DIARRHOEA
  19. CLOXACILLIN [Concomitant]
     Active Substance: CLOXACILLIN
     Indication: INFECTION
     Dosage: 600 MILLIGRAM, QID
     Route: 042
     Dates: start: 20180512, end: 20180515
  20. METRONIDAZOLE. [Concomitant]
     Active Substance: METRONIDAZOLE
     Indication: GASTROINTESTINAL BACTERIAL OVERGROWTH
     Dosage: 60 MILLIGRAM, TID
     Route: 048
     Dates: start: 20140410

REACTIONS (3)
  - Vascular device infection [Recovered/Resolved]
  - Excessive granulation tissue [Recovered/Resolved]
  - Infection [Recovered/Resolved]

NARRATIVE: CASE EVENT DATE: 20180513
